FAERS Safety Report 5347094-7 (Version None)
Quarter: 2007Q2

REPORT INFORMATION
  Report Type: 
  Country: None (occurrence: None)
  Receive Date: 20070604
  Receipt Date: 20070529
  Transmission Date: 20071010
  Serious: Yes (Other)
  Sender: FDA-Public Use
  Company Number: 2007SP010496

PATIENT
  Age: 44 Year
  Sex: Female

DRUGS (2)
  1. PEG-INTRON [Suspect]
     Indication: HEPATITIS C
     Dates: start: 20061007
  2. REBETOL [Suspect]
     Indication: HEPATITIS C
     Dosage: PO
     Route: 048
     Dates: start: 20061007

REACTIONS (8)
  - DEHYDRATION [None]
  - DRY SKIN [None]
  - FEELING COLD [None]
  - HEADACHE [None]
  - OEDEMA PERIPHERAL [None]
  - OPEN WOUND [None]
  - PRURITUS [None]
  - SCRATCH [None]
